FAERS Safety Report 8926151 (Version 2)
Quarter: 2012Q4

REPORT INFORMATION
  Report Type: 
  Country: US (occurrence: US)
  Receive Date: 20121127
  Receipt Date: 20121130
  Transmission Date: 20130627
  Serious: Yes (Death)
  Sender: FDA-Public Use
  Company Number: US-ACTELION-A-US2012-74895

PATIENT
  Age: 80 Year
  Sex: Male

DRUGS (2)
  1. TRACLEER [Suspect]
     Indication: PULMONARY ARTERIAL HYPERTENSION
     Dosage: UNK
     Route: 048
     Dates: end: 20120815
  2. COUMADIN [Concomitant]

REACTIONS (4)
  - Sinus cancer metastatic [Fatal]
  - Metastases to oesophagus [None]
  - Metastases to lymph nodes [None]
  - Metastases to lung [None]
